FAERS Safety Report 6734337-8 (Version None)
Quarter: 2010Q2

REPORT INFORMATION
  Report Type: 
  Country: None (occurrence: None)
  Receive Date: 20100520
  Receipt Date: 20100517
  Transmission Date: 20101027
  Serious: Yes (Death, Hospitalization)
  Sender: FDA-Public Use
  Company Number: IT-WYE-H08929209

PATIENT
  Sex: Male
  Weight: 85 kg

DRUGS (3)
  1. GEMTUZUMAB OZOGAMICIN [Suspect]
     Dosage: 5.0 MG ACTUAL DOSE GIVEN (15.00 MG CUMULATIVE DOSE GIVEN)-FREQUENCY NOT PROVIDED
     Route: 065
     Dates: start: 20060525, end: 20060529
  2. LEVOFLOXACIN [Concomitant]
     Indication: INFECTION
     Dosage: NOT PROVIDED
     Route: 065
     Dates: start: 20060531, end: 20060610
  3. DIFLUCAN [Concomitant]
     Indication: INFECTION
     Dosage: NOT PROVIDED
     Route: 065
     Dates: start: 20060530, end: 20060610

REACTIONS (2)
  - CANDIDA SEPSIS [None]
  - SEPTIC SHOCK [None]
